FAERS Safety Report 25083707 (Version 1)
Quarter: 2025Q1

REPORT INFORMATION
  Report Type: Spontaneous
  Country: US (occurrence: US)
  Receive Date: 20250317
  Receipt Date: 20250317
  Transmission Date: 20250409
  Serious: No
  Sender: SANOFI AVENTIS
  Company Number: US-SA-2025SA076803

PATIENT
  Age: 73 Year
  Sex: Female

DRUGS (12)
  1. DUPIXENT [Suspect]
     Active Substance: DUPILUMAB
     Indication: Dermatitis allergic
     Route: 058
     Dates: start: 20180913
  2. MEMANTINE [Concomitant]
     Active Substance: MEMANTINE
  3. VITAMINS [Concomitant]
     Active Substance: VITAMINS
  4. MELATONIN [Concomitant]
     Active Substance: MELATONIN
  5. RISPERIDONE [Concomitant]
     Active Substance: RISPERIDONE
  6. NAMENDA [Concomitant]
     Active Substance: MEMANTINE HYDROCHLORIDE
  7. ELIQUIS [Concomitant]
     Active Substance: APIXABAN
  8. BUDESONIDE [Concomitant]
     Active Substance: BUDESONIDE
  9. METOPROLOL [Concomitant]
     Active Substance: METOPROLOL
  10. LEVETIRACETAM [Concomitant]
     Active Substance: LEVETIRACETAM
  11. SIMVASTATIN [Concomitant]
     Active Substance: SIMVASTATIN
  12. TRIAMCINOLONE [Concomitant]
     Active Substance: TRIAMCINOLONE

REACTIONS (1)
  - Rash [Unknown]
